FAERS Safety Report 5668981-6 (Version None)
Quarter: 2008Q1

REPORT INFORMATION
  Report Type: 
  Country: None (occurrence: None)
  Receive Date: 20080312
  Receipt Date: 20080312
  Transmission Date: 20080703
  Serious: Yes (Hospitalization)
  Sender: FDA-Public Use
  Company Number: None

PATIENT
  Age: 62 Year
  Sex: Female
  Weight: 53.5244 kg

DRUGS (2)
  1. ATIVAN [Suspect]
     Indication: WRONG DRUG ADMINISTERED
     Dosage: Q4H, THEN QD PO
     Route: 048
     Dates: start: 20070707, end: 20070710
  2. KLONOPIN [Suspect]
     Indication: TREMOR
     Dosage: QD PO
     Route: 048

REACTIONS (7)
  - DRUG INTERACTION [None]
  - HAEMATOMA [None]
  - MEDICATION ERROR [None]
  - NIGHTMARE [None]
  - TREMOR [None]
  - WITHDRAWAL SYNDROME [None]
  - WRONG DRUG ADMINISTERED [None]
